FAERS Safety Report 11080885 (Version 1)
Quarter: 2015Q2

REPORT INFORMATION
  Report Type: Spontaneous
  Country: US (occurrence: None)
  Receive Date: 20150430
  Receipt Date: 20150430
  Transmission Date: 20150821
  Serious: Yes (Life-Threatening, Hospitalization, Disabling)
  Sender: FDA-Public Use
  Company Number: None

PATIENT
  Age: 23 Year
  Sex: Female
  Weight: 90.72 kg

DRUGS (3)
  1. ESTROSTEP [Suspect]
     Active Substance: ETHINYL ESTRADIOL\NORETHINDRONE ACETATE
     Indication: CONTRACEPTION
     Dosage: ESTROSTEP ONCE DAILY TAKEN BY MOUTH
     Route: 048
     Dates: start: 20100209, end: 20100310
  2. ALBUTERAL [Concomitant]
     Active Substance: ALBUTEROL
  3. LOVANOX [Concomitant]

REACTIONS (4)
  - Impaired work ability [None]
  - Cerebrovascular accident [None]
  - Deep vein thrombosis [None]
  - Pulmonary embolism [None]

NARRATIVE: CASE EVENT DATE: 20100310
